FAERS Safety Report 21169529 (Version 3)
Quarter: 2022Q3

REPORT INFORMATION
  Report Type: Spontaneous
  Country: US (occurrence: US)
  Receive Date: 20220804
  Receipt Date: 20220927
  Transmission Date: 20221027
  Serious: Yes (Other)
  Sender: FDA-Public Use
  Company Number: US-GLAXOSMITHKLINE-US2022AMR114599

PATIENT

DRUGS (2)
  1. ZEJULA [Suspect]
     Active Substance: NIRAPARIB
     Indication: Ovarian cancer
     Dosage: 100 MG, QD
     Dates: start: 20220706
  2. ZEJULA [Suspect]
     Active Substance: NIRAPARIB
     Dosage: UNK

REACTIONS (7)
  - Malignant neoplasm progression [Unknown]
  - Fatigue [Not Recovered/Not Resolved]
  - Dizziness [Not Recovered/Not Resolved]
  - Fall [Recovered/Resolved]
  - Skin abrasion [Not Recovered/Not Resolved]
  - Decreased activity [Not Recovered/Not Resolved]
  - Off label use [Not Recovered/Not Resolved]

NARRATIVE: CASE EVENT DATE: 20220701
